FAERS Safety Report 16881215 (Version 1)
Quarter: 2019Q4

REPORT INFORMATION
  Report Type: Spontaneous
  Country: CN (occurrence: CN)
  Receive Date: 20191003
  Receipt Date: 20191003
  Transmission Date: 20200122
  Serious: Yes (Other)
  Sender: FDA-Public Use
  Company Number: CN-BRACCO-2019CN04730

PATIENT
  Age: 60 Year
  Sex: Male

DRUGS (1)
  1. IOPAMIDOL [Suspect]
     Active Substance: IOPAMIDOL
     Indication: DIAGNOSTIC PROCEDURE
     Dosage: 100 ML, SINGLE
     Route: 042
     Dates: start: 20190822, end: 20190822

REACTIONS (5)
  - Dysphoria [Recovering/Resolving]
  - Hypoxia [Recovering/Resolving]
  - Chills [Recovering/Resolving]
  - Salivary hypersecretion [Recovering/Resolving]
  - Tachypnoea [Recovering/Resolving]

NARRATIVE: CASE EVENT DATE: 20190822
